FAERS Safety Report 7430818-2 (Version None)
Quarter: 2011Q2

REPORT INFORMATION
  Report Type: 
  Country: None (occurrence: None)
  Receive Date: 20110421
  Receipt Date: 20110420
  Transmission Date: 20111010
  Serious: Yes (Death)
  Sender: FDA-Public Use
  Company Number: CN-GENZYME-FLUD-1000977

PATIENT
  Sex: Female
  Weight: 56.5 kg

DRUGS (6)
  1. FLUDARA [Suspect]
     Dosage: 30 MG/M2, QD DAYS 1 THROUGH 5
     Route: 042
  2. GRANULOCYTE COLONY STIMULATING FACTOR [Suspect]
     Indication: ACUTE MYELOID LEUKAEMIA
     Dosage: 0.2 MG/M2, QD DAY 0 THROUGH DAY 5
     Route: 065
     Dates: start: 20101213, end: 20110210
  3. CYTARABINE [Suspect]
     Indication: ACUTE MYELOID LEUKAEMIA
     Dosage: 2 G/M2, QD, DAY 1 THROUGH DAY 5
     Route: 042
     Dates: start: 20101214, end: 20110210
  4. FLUDARA [Suspect]
     Indication: ACUTE MYELOID LEUKAEMIA
     Dosage: 30 MG/M2, QD DAYS 1 THROUGH 5
     Route: 042
     Dates: start: 20101214, end: 20110210
  5. GRANULOCYTE COLONY STIMULATING FACTOR [Suspect]
     Dosage: 0.2 MG/M2, QD DAY 0 THROUGH DAY 5
     Route: 065
  6. CYTARABINE [Suspect]
     Dosage: 2 G/M2, QD, DAY 1 THROUGH DAY 5
     Route: 042

REACTIONS (1)
  - LUNG INFECTION [None]
